FAERS Safety Report 11810196 (Version 1)
Quarter: 2015Q4

REPORT INFORMATION
  Report Type: Spontaneous
  Country: US (occurrence: None)
  Receive Date: 20151207
  Receipt Date: 20151207
  Transmission Date: 20160305
  Serious: No
  Sender: FDA-Public Use
  Company Number: None

PATIENT
  Sex: Female

DRUGS (1)
  1. AVONEX [Suspect]
     Active Substance: INTERFERON BETA-1A
     Indication: MULTIPLE SCLEROSIS
     Route: 030
     Dates: start: 20151202

REACTIONS (7)
  - Injection site erythema [None]
  - Haemorrhage [None]
  - Injection site reaction [None]
  - Scratch [None]
  - Pruritus [None]
  - Skin depigmentation [None]
  - Rash [None]
